FAERS Safety Report 16922615 (Version 1)
Quarter: 2019Q4

REPORT INFORMATION
  Report Type: Other
  Country: FR (occurrence: FR)
  Receive Date: 20191016
  Receipt Date: 20191016
  Transmission Date: 20200122
  Serious: Yes (Hospitalization)
  Sender: FDA-Public Use
  Company Number: FR-CELLTRION INC.-2019FR025528

PATIENT

DRUGS (3)
  1. RITUXIMAB (UNKNOWN) [Suspect]
     Active Substance: RITUXIMAB
     Indication: LEUKAEMIA
     Dosage: 1 DF
     Route: 058
     Dates: start: 20190701
  2. LOVENOX [Suspect]
     Active Substance: ENOXAPARIN SODIUM
  3. BORTEZOMIB. [Suspect]
     Active Substance: BORTEZOMIB

REACTIONS (4)
  - Febrile bone marrow aplasia [Not Recovered/Not Resolved]
  - Product use issue [Unknown]
  - Pancytopenia [Not Recovered/Not Resolved]
  - Agranulocytosis [Not Recovered/Not Resolved]

NARRATIVE: CASE EVENT DATE: 20190828
